FAERS Safety Report 5307032-X (Version None)
Quarter: 2007Q2

REPORT INFORMATION
  Report Type: 
  Country: None (occurrence: None)
  Receive Date: 20070420
  Receipt Date: 20070420
  Transmission Date: 20071010
  Serious: Yes (Other)
  Sender: FDA-Public Use
  Company Number: None

PATIENT
  Sex: Female
  Weight: 58.9676 kg

DRUGS (10)
  1. HYDROXYCHLOROQUINE SULFATE [Suspect]
     Indication: RHEUMATOID ARTHRITIS
     Dosage: 200MG 2 Q D
  2. METHOTREXATE [Concomitant]
  3. FOLIC ACID [Concomitant]
  4. CELEPREX [Concomitant]
  5. EVISTA [Concomitant]
  6. LUNESTA [Concomitant]
  7. XANAX [Concomitant]
  8. VIT C [Concomitant]
  9. VIT E [Concomitant]
  10. CALCIUM CHLORIDE [Concomitant]

REACTIONS (2)
  - EYE DISORDER [None]
  - VISUAL FIELD DEFECT [None]
